FAERS Safety Report 7981125-0 (Version None)
Quarter: 2011Q4

REPORT INFORMATION
  Report Type: 
  Country: None (occurrence: None)
  Receive Date: 20111212
  Receipt Date: 20111128
  Transmission Date: 20120403
  Serious: Yes (Death)
  Sender: FDA-Public Use
  Company Number: 2011BN000104

PATIENT
  Age: 27 Year
  Sex: Male

DRUGS (9)
  1. DAUNORUBICIN HCL [Concomitant]
  2. CYTARABINE [Concomitant]
  3. THIOGUANINE [Concomitant]
  4. MELPHALAN HYDROCHLORIDE [Suspect]
     Indication: ACUTE MYELOID LEUKAEMIA
     Dosage: 70 MG/M**2;
  5. BUSULFAN [Suspect]
     Indication: ACUTE MYELOID LEUKAEMIA
     Dosage: 0.8 MG/KG;
  6. FLUDARABINE PHOSPHATE [Suspect]
     Indication: ACUTE MYELOID LEUKAEMIA
     Dosage: 25 MG/M**2
  7. ETOPOSIDE [Concomitant]
  8. DEXAMETHASONE [Concomitant]
  9. ELSPAR [Concomitant]

REACTIONS (1)
  - LEUKAEMIA RECURRENT [None]
